FAERS Safety Report 13177417 (Version 1)
Quarter: 2017Q1

REPORT INFORMATION
  Report Type: Report from Study
  Country: US (occurrence: US)
  Receive Date: 20170201
  Receipt Date: 20170201
  Transmission Date: 20170428
  Serious: No
  Sender: FDA-Public Use
  Company Number: US-EXELIXIS-CABO-16006165

PATIENT
  Sex: Female

DRUGS (4)
  1. TOLNAFTATE. [Concomitant]
     Active Substance: TOLNAFTATE
  2. INLYTA [Concomitant]
     Active Substance: AXITINIB
  3. COMETRIQ [Suspect]
     Active Substance: CABOZANTINIB S-MALATE
     Indication: RENAL CANCER
     Dosage: 60 MG, QD
     Route: 048
     Dates: start: 20160319, end: 2016
  4. COMETRIQ [Suspect]
     Active Substance: CABOZANTINIB S-MALATE
     Dosage: 60 MG, QD
     Route: 048
     Dates: start: 2016

REACTIONS (9)
  - Fungal skin infection [Unknown]
  - Off label use [Unknown]
  - Neoplasm [Unknown]
  - Stomatitis [Unknown]
  - Abdominal discomfort [Unknown]
  - Dry mouth [Unknown]
  - Headache [Unknown]
  - Rash [Unknown]
  - Tumour pain [Unknown]
